FAERS Safety Report 7098211-2 (Version None)
Quarter: 2010Q4

REPORT INFORMATION
  Report Type: 
  Country: None (occurrence: None)
  Receive Date: 20101112
  Receipt Date: 20101026
  Transmission Date: 20110411
  Serious: Yes (Disabling)
  Sender: FDA-Public Use
  Company Number: AU-EISAI INC.-E3810-04154-SPO-AU

PATIENT
  Sex: Male
  Weight: 65 kg

DRUGS (1)
  1. PARIET (RABEPRAZOLE) [Suspect]
     Route: 048
     Dates: end: 20101012

REACTIONS (1)
  - GYNAECOMASTIA [None]
